FAERS Safety Report 7088419-4 (Version None)
Quarter: 2010Q4

REPORT INFORMATION
  Report Type: 
  Country: None (occurrence: None)
  Receive Date: 20101108
  Receipt Date: 20101028
  Transmission Date: 20110411
  Serious: Yes (Hospitalization, Other)
  Sender: FDA-Public Use
  Company Number: US-ROCHE-729989

PATIENT
  Sex: Female
  Weight: 49.1 kg

DRUGS (7)
  1. PEGASYS [Suspect]
     Indication: HEPATITIS C
     Dosage: FORM: PRE-FILLED SYRINGE
     Route: 058
     Dates: start: 20100518, end: 20100726
  2. COPEGUS [Suspect]
     Indication: HEPATITIS C
     Route: 048
     Dates: start: 20100518, end: 20100723
  3. LAMICTAL [Concomitant]
     Route: 048
  4. NEURONTIN [Concomitant]
     Route: 048
  5. PROZAC [Concomitant]
     Route: 048
  6. WELLBUTRIN SR [Concomitant]
     Route: 048
  7. KLONOPIN [Concomitant]
     Route: 048

REACTIONS (11)
  - ALOPECIA [None]
  - ANAEMIA [None]
  - BALANCE DISORDER [None]
  - DEPRESSION [None]
  - DIZZINESS [None]
  - FALL [None]
  - FATIGUE [None]
  - FULL BLOOD COUNT DECREASED [None]
  - LOSS OF CONSCIOUSNESS [None]
  - MENTAL STATUS CHANGES [None]
  - WEIGHT DECREASED [None]
